FAERS Safety Report 7895435-9 (Version None)
Quarter: 2011Q4

REPORT INFORMATION
  Report Type: 
  Country: None (occurrence: None)
  Receive Date: 20111106
  Receipt Date: 20110826
  Transmission Date: 20120403
  Serious: No
  Sender: FDA-Public Use
  Company Number: US-AMGEN-USASP2011043795

PATIENT
  Sex: Female

DRUGS (2)
  1. ENBREL [Suspect]
     Indication: RHEUMATOID ARTHRITIS
     Dosage: 50 MG, QWK
     Dates: start: 20110520
  2. METHOTREXATE [Concomitant]
     Dosage: 6 MG, QWK
     Dates: start: 20100801

REACTIONS (3)
  - INJECTION SITE PAIN [None]
  - PAIN [None]
  - INJECTION SITE ERYTHEMA [None]
